FAERS Safety Report 26084124 (Version 2)
Quarter: 2025Q4

REPORT INFORMATION
  Report Type: Report from Study
  Country: US (occurrence: US)
  Receive Date: 20251124
  Receipt Date: 20251218
  Transmission Date: 20260117
  Serious: Yes (Hospitalization, Other)
  Sender: DECIPHERA PHARMACEUTICALS
  Company Number: US-DECIPHERA PHARMACEUTICALS LLC-2025US001453

PATIENT
  Age: 73 Year
  Sex: Male

DRUGS (1)
  1. QINLOCK [Suspect]
     Active Substance: RIPRETINIB
     Indication: Gastrointestinal stromal tumour
     Dosage: 150 MILLIGRAM, QD (50 MG 3 TABLETS ONCE DAILY)
     Route: 061
     Dates: start: 20250627

REACTIONS (3)
  - Toe amputation [Unknown]
  - Blood potassium increased [Unknown]
  - Dehydration [Unknown]

NARRATIVE: CASE EVENT DATE: 20251101
